FAERS Safety Report 13835255 (Version 2)
Quarter: 2018Q4

REPORT INFORMATION
  Report Type: Spontaneous
  Country: US (occurrence: US)
  Receive Date: 20170804
  Receipt Date: 20181127
  Transmission Date: 20190204
  Serious: Yes (Other)
  Sender: FDA-Public Use
  Company Number: US-VELOXIS PHARMACEUTICALS-2024162

PATIENT
  Age: 17 Year
  Sex: Female
  Weight: 97 kg

DRUGS (2)
  1. ENVARSUS XR [Suspect]
     Active Substance: TACROLIMUS
     Indication: PRODUCT USED FOR UNKNOWN INDICATION
     Dosage: 20 MG, UNK
     Route: 065
  2. ENVARSUS XR [Suspect]
     Active Substance: TACROLIMUS
     Dosage: 30 MG, UNK
     Route: 065

REACTIONS (3)
  - Immunosuppressant drug level decreased [Not Recovered/Not Resolved]
  - Chronic allograft nephropathy [Unknown]
  - Renal transplant failure [Unknown]
